FAERS Safety Report 5300306-8 (Version None)
Quarter: 2007Q2

REPORT INFORMATION
  Report Type: 
  Country: None (occurrence: None)
  Receive Date: 20070418
  Receipt Date: 20070405
  Transmission Date: 20071010
  Serious: Yes (Hospitalization, Other)
  Sender: FDA-Public Use
  Company Number: PHHO2007JP04204

PATIENT
  Age: 80 Year
  Sex: Male
  Weight: 62 kg

DRUGS (3)
  1. DIOVAN [Suspect]
     Dosage: 40 MG, BID
     Route: 048
     Dates: start: 20030218, end: 20061212
  2. DOPS [Concomitant]
     Indication: PARKINSON'S DISEASE
  3. TICLOPIDINE HCL [Concomitant]
     Indication: CEREBRAL INFARCTION

REACTIONS (9)
  - BLOOD CREATINE PHOSPHOKINASE INCREASED [None]
  - CONVULSION [None]
  - DEMENTIA [None]
  - DEPRESSED LEVEL OF CONSCIOUSNESS [None]
  - HEMIPARESIS [None]
  - HEMIPLEGIA [None]
  - RHABDOMYOLYSIS [None]
  - THROMBOTIC STROKE [None]
  - VISUAL DISTURBANCE [None]
